FAERS Safety Report 7092798-1 (Version None)
Quarter: 2010Q4

REPORT INFORMATION
  Report Type: 
  Country: None (occurrence: None)
  Receive Date: 20101110
  Receipt Date: 20101028
  Transmission Date: 20110411
  Serious: No
  Sender: FDA-Public Use
  Company Number: US-PFIZER INC-2010137870

PATIENT
  Sex: Female

DRUGS (1)
  1. CHANTIX [Suspect]
     Indication: SMOKING CESSATION THERAPY
     Dosage: UNK
     Dates: start: 20100901

REACTIONS (6)
  - ABNORMAL DREAMS [None]
  - DRY MOUTH [None]
  - FEELING OF BODY TEMPERATURE CHANGE [None]
  - NAUSEA [None]
  - PARAESTHESIA [None]
  - THIRST [None]
